FAERS Safety Report 9084022 (Version 1)
Quarter: 2013Q1

REPORT INFORMATION
  Report Type: Spontaneous
  Country: IT (occurrence: IT)
  Receive Date: 20130130
  Receipt Date: 20130130
  Transmission Date: 20140127
  Serious: Yes (Hospitalization)
  Sender: FDA-Public Use
  Company Number: IT-BAYER-2013-009371

PATIENT
  Age: 82 Year
  Sex: Male

DRUGS (7)
  1. ACETYLSALICYLIC ACID({=100 MG) [Suspect]
     Dosage: 100 MG, QD
     Route: 048
     Dates: start: 20120101, end: 20121019
  2. LEXOTAN [Concomitant]
     Dosage: UNK
  3. LANSOPRAZOLE [Concomitant]
     Dosage: UNK
  4. FUROSEMIDE [Concomitant]
     Dosage: UNK
  5. RAMIPRIL [Concomitant]
     Dosage: UNK
  6. ATORVASTATIN [Concomitant]
     Dosage: UNK
  7. EBIXA [Concomitant]
     Dosage: UNK

REACTIONS (3)
  - Craniocerebral injury [Unknown]
  - Subarachnoid haemorrhage [Unknown]
  - Syncope [Unknown]
